FAERS Safety Report 23566719 (Version 1)
Quarter: 2024Q1

REPORT INFORMATION
  Report Type: Spontaneous
  Country: SE (occurrence: SE)
  Receive Date: 20240226
  Receipt Date: 20240226
  Transmission Date: 20240410
  Serious: Yes (Death, Other)
  Sender: FDA-Public Use
  Company Number: None

PATIENT
  Age: 85 Year
  Sex: Female

DRUGS (9)
  1. ELIQUIS [Suspect]
     Active Substance: APIXABAN
     Indication: Product used for unknown indication
     Dosage: 1 TABLET AT 8 A.M. AND 1 TABLET AT 6 P.M
     Dates: start: 2016
  2. ATORVASTATIN ACTAVIS [ATORVASTATIN CALCIUM] [Concomitant]
     Dosage: 1 TABLET AT 8 AM
  3. MOVICOL [Concomitant]
     Active Substance: POLYETHYLENE GLYCOL 3350\POTASSIUM CHLORIDE\SODIUM BICARBONATE\SODIUM CHLORIDE
     Indication: Product used for unknown indication
     Dosage: 1 SACHET AS NEEDED, 1-2 TIMES A DAY. SOFTENING FOR THE STOMACH
  4. CYANOCOBALAMIN [Concomitant]
     Active Substance: CYANOCOBALAMIN
     Dosage: 1 TABLET AT 8 AM
  5. LAKRIMONT [Concomitant]
     Dosage: A DROP IN THE LEFT EYE 3 TIMES A DAY
  6. FOLVIDON [Concomitant]
     Indication: Product used for unknown indication
     Dosage: 1 TABLET AT 8 AM
  7. ESIDREX [Concomitant]
     Active Substance: HYDROCHLOROTHIAZIDE
     Indication: Product used for unknown indication
     Dosage: 1 TABLET AT 8 AM
  8. PARACETAMOL ORIFARM [Concomitant]
     Indication: Product used for unknown indication
     Dosage: 2 TABLETS AS NEEDED 1-4 TIMES A DAY FOR PAIN. A MAXIMUM OF 8 TABLETS PER DAY
  9. UREA [Concomitant]
     Active Substance: UREA
     Indication: Product used for unknown indication
     Dosage: LUBRICATE ON DRY SKIN

REACTIONS (3)
  - Depressed level of consciousness [Fatal]
  - Cerebral haemorrhage [Fatal]
  - Subdural haematoma [Fatal]

NARRATIVE: CASE EVENT DATE: 20240108
